FAERS Safety Report 26002729 (Version 1)
Quarter: 2025Q4

REPORT INFORMATION
  Report Type: Spontaneous
  Country: EU (occurrence: EU)
  Receive Date: 20251106
  Receipt Date: 20251106
  Transmission Date: 20260117
  Serious: Yes (Death)
  Sender: ABBVIE
  Company Number: EU-ABBVIE-6535574

PATIENT
  Age: 72 Year
  Sex: Female

DRUGS (1)
  1. FOSCARBIDOPA\FOSLEVODOPA [Suspect]
     Active Substance: FOSCARBIDOPA\FOSLEVODOPA
     Indication: Product used for unknown indication
     Route: 058

REACTIONS (3)
  - Death [Fatal]
  - Pyrexia [Unknown]
  - Dystonia [Recovering/Resolving]

NARRATIVE: CASE EVENT DATE: 20250101
